FAERS Safety Report 14289845 (Version 2)
Quarter: 2019Q4

REPORT INFORMATION
  Report Type: Report from Study
  Country: None (occurrence: US)
  Receive Date: 20171215
  Receipt Date: 20191008
  Transmission Date: 20200122
  Serious: Yes (Hospitalization, Other)
  Sender: FDA-Public Use
  Company Number: US-ABBVIE-17K-163-2143719-00

PATIENT
  Sex: Female

DRUGS (1)
  1. HUMIRA [Suspect]
     Active Substance: ADALIMUMAB
     Indication: RHEUMATOID ARTHRITIS
     Route: 058

REACTIONS (8)
  - Joint effusion [Not Recovered/Not Resolved]
  - Blood count abnormal [Recovered/Resolved]
  - Urinary tract infection [Recovered/Resolved]
  - Influenza [Recovered/Resolved]
  - Malaise [Not Recovered/Not Resolved]
  - Exostosis [Not Recovered/Not Resolved]
  - Joint effusion [Recovered/Resolved]
  - Red blood cell sedimentation rate increased [Not Recovered/Not Resolved]

NARRATIVE: CASE EVENT DATE: 2017
